FAERS Safety Report 15349899 (Version 2)
Quarter: 2018Q3

REPORT INFORMATION
  Report Type: Spontaneous
  Country: GB (occurrence: GB)
  Receive Date: 20180904
  Receipt Date: 20180904
  Transmission Date: 20181010
  Serious: Yes (Other)
  Sender: FDA-Public Use
  Company Number: PHHY2018GB063858

PATIENT

DRUGS (5)
  1. PREDNISOLONE. [Suspect]
     Active Substance: PREDNISOLONE
     Dosage: 7.5 MG, UNK
     Route: 065
  2. PREDNISOLONE. [Suspect]
     Active Substance: PREDNISOLONE
     Indication: BIRDSHOT CHORIORETINOPATHY
     Dosage: 10 MG, UNK
     Route: 065
  3. TACROLIMUS. [Suspect]
     Active Substance: TACROLIMUS
     Indication: BIRDSHOT CHORIORETINOPATHY
     Dosage: 2 MG, UNK (FURTHER INCREASED TO ACHIEVE A SERUM TROUGH LEVEL OF 510 NG/ML)
     Route: 065
  4. PREDNISOLONE. [Suspect]
     Active Substance: PREDNISOLONE
     Dosage: 5 MG, UNK
     Route: 065
  5. MYCOPHENOLATE MOFETIL. [Concomitant]
     Active Substance: MYCOPHENOLATE MOFETIL
     Indication: BIRDSHOT CHORIORETINOPATHY
     Dosage: UNK
     Route: 065

REACTIONS (5)
  - Tremor [Unknown]
  - Birdshot chorioretinopathy [Unknown]
  - Product use in unapproved indication [Unknown]
  - Renal function test abnormal [Recovered/Resolved]
  - Renal impairment [Recovered/Resolved]
